FAERS Safety Report 4437258-9 (Version None)
Quarter: 2004Q3

REPORT INFORMATION
  Report Type: 
  Country: None (occurrence: None)
  Receive Date: 20040827
  Receipt Date: 20040819
  Transmission Date: 20050211
  Serious: Yes (Hospitalization, Other)
  Sender: FDA-Public Use
  Company Number: USA-2002-0003060

PATIENT
  Age: 53 Year
  Sex: Female
  Weight: 52.2 kg

DRUGS (23)
  1. OXYCONTIN [Suspect]
     Indication: PAIN
     Dates: start: 19981124, end: 20001116
  2. LORCET-HD [Concomitant]
  3. AMBIEN [Concomitant]
  4. ATENOLOL [Concomitant]
  5. CYCLOBENZAPRINE HCL [Concomitant]
  6. TENORETIC 100 [Concomitant]
  7. MIRALAX [Concomitant]
  8. CEFTIN [Concomitant]
  9. CLARITIN-D (PSEUDOEPHEDRINE SULFATE, ORATADINE) [Concomitant]
  10. AUGMENTIN (CLAVULANATE POTASSIUM, AMOXICILLIN THRIHYDRATE) [Concomitant]
  11. PROVENTIL HFA (SALBUTAMOL) [Concomitant]
  12. COLACE CAPSULES (DOCUSATE SODIUM) CAPSULE [Concomitant]
  13. HYCODAN [Concomitant]
  14. CYPROHEPTADINE HCL [Concomitant]
  15. METAMUCIL-2 [Concomitant]
  16. ZITHROMAX [Concomitant]
  17. GOLYTELY (MACROGOL, SODIUM SULFATE, SODIUM CHLORIDE, POTASSIUM CHLORID [Concomitant]
  18. HUMIBID DM (GUAIFENESIN) [Concomitant]
  19. HYDROQUINONE (HYDROQUINONE) [Concomitant]
  20. BETAMETHASONE [Concomitant]
  21. TYLENOL [Concomitant]
  22. BACLOFEN 9BACLOFEN) [Concomitant]
  23. DOXYCYCLINE [Concomitant]

REACTIONS (22)
  - ABDOMINAL PAIN [None]
  - ANOREXIA [None]
  - ANXIETY [None]
  - BRONCHITIS ACUTE [None]
  - CONSTIPATION [None]
  - DEHYDRATION [None]
  - DEPRESSION [None]
  - DIVERTICULUM [None]
  - DIZZINESS [None]
  - DRUG DEPENDENCE [None]
  - DRUG WITHDRAWAL SYNDROME [None]
  - HAEMATOCHEZIA [None]
  - HAEMORRHOIDS [None]
  - HYPERHIDROSIS [None]
  - ILEUS [None]
  - INFLAMMATORY BOWEL DISEASE [None]
  - INSOMNIA [None]
  - LYMPHOID TISSUE HYPERPLASIA [None]
  - NECK PAIN [None]
  - PAIN [None]
  - SINUSITIS [None]
  - WEIGHT DECREASED [None]
